FAERS Safety Report 20701650 (Version 1)
Quarter: 2022Q2

REPORT INFORMATION
  Report Type: Spontaneous
  Country: SK (occurrence: SK)
  Receive Date: 20220412
  Receipt Date: 20220412
  Transmission Date: 20220721
  Serious: Yes (Death, Life-Threatening, Other)
  Sender: FDA-Public Use
  Company Number: SK-AMGEN-SVKSP2022060586

PATIENT

DRUGS (5)
  1. PEGFILGRASTIM [Suspect]
     Active Substance: PEGFILGRASTIM
     Indication: Prophylaxis
     Dosage: UNK  ON DAY 6, 24 H AFTER CHEMO
     Route: 065
  2. PACLITAXEL [Concomitant]
     Active Substance: PACLITAXEL
     Dosage: 250 MILLIGRAM/SQ. METER ON DAY 1
  3. IFOSFAMIDE [Concomitant]
     Active Substance: IFOSFAMIDE
     Dosage: 1200 MILLIGRAM/SQ. METER ON DAYS 1-5
  4. CISPLATIN [Concomitant]
     Active Substance: CISPLATIN
     Dosage: 20 MILLIGRAM/SQ. METER ON DAYS 1-5
  5. MESNA [Concomitant]
     Active Substance: MESNA
     Dosage: UNK

REACTIONS (17)
  - Death [Fatal]
  - Toxicity to various agents [Unknown]
  - Neutropenia [Unknown]
  - Thrombocytopenia [Unknown]
  - Anaemia [Unknown]
  - Febrile neutropenia [Unknown]
  - Syncope [Unknown]
  - Infection [Unknown]
  - Fatigue [Unknown]
  - Paraesthesia [Unknown]
  - Abdominal abscess [Unknown]
  - Fistula of small intestine [Unknown]
  - Sepsis [Unknown]
  - Thrombosis [Unknown]
  - Limb injury [Unknown]
  - Testicular germ cell tumour [Unknown]
  - Retroperitoneal cancer [Unknown]
